FAERS Safety Report 5293261-0 (Version None)
Quarter: 2007Q1

REPORT INFORMATION
  Report Type: 
  Country: None (occurrence: None)
  Receive Date: 20070116
  Receipt Date: 20051216
  Transmission Date: 20070707
  Serious: Yes (Other)
  Sender: FDA-Public Use
  Company Number: HQWYE953808JUL04

PATIENT
  Age: 64 Year
  Sex: Female

DRUGS (3)
  1. PREMPRO [Suspect]
     Indication: HORMONE REPLACEMENT THERAPY
     Dosage: UNK; ORAL
     Route: 048
     Dates: start: 19960101, end: 19990917
  2. PREMARIN [Suspect]
     Indication: OESTROGEN REPLACEMENT THERAPY
     Dosage: UNK; ORAL
     Route: 048
     Dates: start: 19940308, end: 19960101
  3. PROVERA [Suspect]
     Indication: HORMONE REPLACEMENT THERAPY
     Dosage: UNK; ORAL
     Route: 048
     Dates: start: 19940304, end: 19960101

REACTIONS (1)
  - BREAST CANCER [None]
